FAERS Safety Report 7408309-4 (Version None)
Quarter: 2011Q2

REPORT INFORMATION
  Report Type: 
  Country: None (occurrence: None)
  Receive Date: 20110412
  Receipt Date: 20110331
  Transmission Date: 20111010
  Serious: Yes (Hospitalization, Other)
  Sender: FDA-Public Use
  Company Number: US-KINGPHARMUSA00001-K201100386

PATIENT

DRUGS (3)
  1. DIPHENHYDRAMINE HYDROCHLORIDE [Concomitant]
     Indication: SINUS DISORDER
     Dosage: UNK, PRN
  2. LEVOXYL [Suspect]
     Indication: BASEDOW'S DISEASE
     Dosage: 125 MCG, UNK
     Route: 048
  3. LEVOXYL [Suspect]
     Dosage: UNK
     Dates: start: 20040101

REACTIONS (3)
  - HEART INJURY [None]
  - CARDIAC FAILURE CONGESTIVE [None]
  - OEDEMA [None]
